FAERS Safety Report 23635117 (Version 1)
Quarter: 2024Q1

REPORT INFORMATION
  Report Type: Spontaneous
  Country: JP (occurrence: JP)
  Receive Date: 20240315
  Receipt Date: 20240315
  Transmission Date: 20240410
  Serious: Yes (Death, Hospitalization)
  Sender: FDA-Public Use
  Company Number: JP-002147023-NVSJ2024JP003359

PATIENT
  Sex: Female

DRUGS (3)
  1. PAZOPANIB [Suspect]
     Active Substance: PAZOPANIB
     Indication: Breast cancer
     Dosage: UNK
     Route: 048
  2. PAZOPANIB [Suspect]
     Active Substance: PAZOPANIB
     Dosage: DECREASED
     Route: 048
  3. PAZOPANIB [Suspect]
     Active Substance: PAZOPANIB
     Dosage: DECREASED
     Route: 048

REACTIONS (5)
  - Cardiac failure [Fatal]
  - Cardiomyopathy [Unknown]
  - Nausea [Unknown]
  - Vomiting [Unknown]
  - Product use in unapproved indication [Unknown]
